FAERS Safety Report 13251244 (Version 3)
Quarter: 2017Q1

REPORT INFORMATION
  Report Type: Spontaneous
  Country: JP (occurrence: JP)
  Receive Date: 20170220
  Receipt Date: 20170313
  Transmission Date: 20170428
  Serious: Yes (Hospitalization, Other)
  Sender: FDA-Public Use
  Company Number: JP-ORION CORPORATION ORION PHARMA-ENT 2017-0025

PATIENT
  Age: 78 Year
  Sex: Female
  Weight: 46 kg

DRUGS (9)
  1. LEVODOPA BENSERAZIDE [Concomitant]
     Active Substance: BENSERAZIDE\LEVODOPA
     Route: 065
  2. ROPINIROLE. [Concomitant]
     Active Substance: ROPINIROLE
     Route: 065
  3. EXELON PATCH [Suspect]
     Active Substance: RIVASTIGMINE
     Indication: DEMENTIA ALZHEIMER^S TYPE
     Dosage: 18 MG (PATCH 10, 9.5 MG QD PATCH)
     Route: 062
  4. YOKUKANSAN [Concomitant]
     Active Substance: HERBALS
     Dosage: STRENGTH: 2.5 G
     Route: 065
  5. ETIZOLAM [Concomitant]
     Active Substance: ETIZOLAM
     Route: 065
  6. COMTAN [Suspect]
     Active Substance: ENTACAPONE
     Indication: PARKINSON^S DISEASE
     Route: 048
  7. ALPRAZOLAMS [Concomitant]
     Route: 065
  8. MEMANTINE. [Concomitant]
     Active Substance: MEMANTINE
     Dosage: STRENGTH: 10 MG
     Route: 065
  9. PERGOLIDE [Concomitant]
     Active Substance: PERGOLIDE
     Dosage: STRENGTH: 250 UG
     Route: 065

REACTIONS (8)
  - Sudden onset of sleep [Not Recovered/Not Resolved]
  - Jealous delusion [Not Recovered/Not Resolved]
  - Eating disorder [Not Recovered/Not Resolved]
  - Hypersomnia [Not Recovered/Not Resolved]
  - Sleep phase rhythm disturbance [Not Recovered/Not Resolved]
  - Persecutory delusion [Not Recovered/Not Resolved]
  - Locked-in syndrome [Not Recovered/Not Resolved]
  - Drug ineffective [Not Recovered/Not Resolved]
